FAERS Safety Report 4721539-5 (Version None)
Quarter: 2005Q3

REPORT INFORMATION
  Report Type: 
  Country: None (occurrence: None)
  Receive Date: 20050721
  Receipt Date: 20041111
  Transmission Date: 20060218
  Serious: No
  Sender: FDA-Public Use
  Company Number: US-BRISTOL-MYERS SQUIBB COMPANY-12762886

PATIENT
  Age: 68 Year
  Sex: Male
  Weight: 122 kg

DRUGS (9)
  1. COUMADIN [Suspect]
     Indication: ARRHYTHMIA
     Dosage: 2.5MG/DAY FOR 14DAYS THEN 5MG/4NIGHTS-2.5MG/3NIGHTS FOR 2WKS.
     Route: 048
  2. NOVOSPIROTON [Concomitant]
  3. ASPIRIN [Concomitant]
  4. SIMVASTATIN [Concomitant]
  5. CARVEDILOL [Concomitant]
  6. FLAXSEED [Concomitant]
  7. GLYBURIDE [Concomitant]
  8. LANOXIN [Concomitant]
  9. LISINOPRIL [Concomitant]

REACTIONS (2)
  - AMNESIA [None]
  - INTERNATIONAL NORMALISED RATIO FLUCTUATION [None]
